FAERS Safety Report 5397080-6 (Version None)
Quarter: 2007Q3

REPORT INFORMATION
  Report Type: 
  Country: None (occurrence: None)
  Receive Date: 20070725
  Receipt Date: 20070615
  Transmission Date: 20080115
  Serious: Yes (Hospitalization, Other)
  Sender: FDA-Public Use
  Company Number: ES-MERCK-0611ESP00030

PATIENT
  Age: 14 Year
  Sex: Male

DRUGS (8)
  1. SINGULAIR [Suspect]
     Indication: ASTHMA
     Route: 048
     Dates: start: 20060101, end: 20060501
  2. SINGULAIR [Suspect]
     Route: 048
     Dates: start: 20061021, end: 20061115
  3. SALMETEROL XINAFOATE [Concomitant]
     Indication: ASTHMA
  4. IMMUNOTHERAPY (UNSPECIFIED) [Concomitant]
     Indication: FOOD ALLERGY
     Route: 065
     Dates: start: 20060901
  5. FLUTICASONE PROPIONATE [Concomitant]
     Dates: start: 20030101, end: 20060501
  6. FLUTICASONE PROPIONATE AND SALMETEROL XINAFOATE [Concomitant]
     Dates: start: 20030101, end: 20060501
  7. FLUTICASONE PROPIONATE AND SALMETEROL XINAFOATE [Concomitant]
     Dates: start: 20060601, end: 20060101
  8. FLUTICASONE PROPIONATE [Concomitant]
     Route: 065
     Dates: start: 20060601, end: 20060101

REACTIONS (2)
  - MANIA [None]
  - OVERDOSE [None]
